FAERS Safety Report 9916100 (Version 1)
Quarter: 2014Q1

REPORT INFORMATION
  Report Type: Spontaneous
  Country: MX (occurrence: MX)
  Receive Date: 20140221
  Receipt Date: 20140221
  Transmission Date: 20141002
  Serious: Yes (Other)
  Sender: FDA-Public Use
  Company Number: MX-BAYER-2014-023611

PATIENT
  Age: 43 Year
  Sex: Male

DRUGS (2)
  1. AVELOX [Suspect]
     Indication: RESPIRATORY TRACT INFECTION
     Dosage: 400 MG, UNK
     Route: 048
  2. ACTRON [Interacting]
     Indication: RESPIRATORY TRACT INFECTION
     Route: 048

REACTIONS (3)
  - Poisoning [Unknown]
  - Drug interaction [Unknown]
  - Hypersensitivity [Unknown]
